FAERS Safety Report 4642940-4 (Version None)
Quarter: 2005Q2

REPORT INFORMATION
  Report Type: 
  Country: None (occurrence: None)
  Receive Date: 20050421
  Receipt Date: 20050408
  Transmission Date: 20051028
  Serious: Yes (Death)
  Sender: FDA-Public Use
  Company Number: 2005057199

PATIENT
  Age: 76 Year
  Sex: Male

DRUGS (7)
  1. AZITHROMYCIN [Suspect]
     Indication: PNEUMONIA
     Dosage: ORAL
     Route: 048
     Dates: start: 20050402, end: 20050404
  2. CALAMINE/CAMPHOR/DIPHENHYDRAMINE (CALAMINE, CAMPHOR, DIPHENHYDRAMINE) [Concomitant]
  3. SALMETEROL XINAFOATE (SALMETEROL XINAFOATE) [Concomitant]
  4. FLUTICASONE PROPIONATE [Concomitant]
  5. AMBROXOL HYDROCHLORIDE (AMBROXOL HYDROCHLORIDE) [Concomitant]
  6. TRANEXAMIC ACID (TRANEXAMIC ACID) [Concomitant]
  7. IBUPROFEN [Concomitant]

REACTIONS (1)
  - PNEUMONIA [None]
